FAERS Safety Report 4637973-8 (Version None)
Quarter: 2005Q2

REPORT INFORMATION
  Report Type: 
  Country: None (occurrence: None)
  Receive Date: 20050415
  Receipt Date: 20050411
  Transmission Date: 20051028
  Serious: Yes (Death, Hospitalization)
  Sender: FDA-Public Use
  Company Number: GBWYE573311APR05

PATIENT
  Age: 83 Year
  Sex: Male

DRUGS (5)
  1. EFEXOR XL (VENLAFAXINE HYDROCHLORIDE, CAPSULE, EXTENDED RELEASE, 0) [Suspect]
     Indication: DEPRESSION
     Dosage: 75 MG 1X PER 1 DAY ORAL
     Route: 048
     Dates: start: 20031101, end: 20031201
  2. EFEXOR XL (VENLAFAXINE HYDRCHLORIDE, CAPSULE, EXTENDED RELEASE, 0) [Suspect]
     Dosage: 150 MG 1X PER 1 DAY ORAL
     Route: 048
     Dates: start: 20031201
  3. ASPIRIN [Concomitant]
  4. BENDROFLUAZIDE (BENDROFLUMETHIAZIDE) [Concomitant]
  5. UNSPECIFIED BETA BLOCKER (UNSPECIFIED BETA BLOCKER), [Concomitant]

REACTIONS (4)
  - CARDIAC FAILURE [None]
  - GENERAL PHYSICAL HEALTH DETERIORATION [None]
  - TACHYCARDIA [None]
  - THERAPY NON-RESPONDER [None]
